FAERS Safety Report 15897183 (Version 1)
Quarter: 2019Q1

REPORT INFORMATION
  Report Type: Spontaneous
  Country: US (occurrence: US)
  Receive Date: 20190131
  Receipt Date: 20190131
  Transmission Date: 20190417
  Serious: No
  Sender: FDA-Public Use
  Company Number: US-GLAXOSMITHKLINE-US2018GSK209908

PATIENT
  Age: 38 Year
  Sex: Female

DRUGS (1)
  1. BENLYSTA [Suspect]
     Active Substance: BELIMUMAB
     Indication: SYSTEMIC LUPUS ERYTHEMATOSUS
     Dosage: UNK

REACTIONS (5)
  - Alopecia [Unknown]
  - Pain [Not Recovered/Not Resolved]
  - Drug effect variable [Unknown]
  - Swelling [Unknown]
  - Decreased activity [Unknown]

NARRATIVE: CASE EVENT DATE: 20181115
